FAERS Safety Report 5716162-X (Version None)
Quarter: 2008Q2

REPORT INFORMATION
  Report Type: 
  Country: None (occurrence: None)
  Receive Date: 20080424
  Receipt Date: 20080418
  Transmission Date: 20081010
  Serious: Yes (Other)
  Sender: FDA-Public Use
  Company Number: PHBS2007JP14737

PATIENT
  Age: 70 Year
  Sex: Male

DRUGS (6)
  1. DIOVAN [Suspect]
     Dosage: 80 MG/DAY
     Route: 048
  2. ATELEC [Concomitant]
     Dosage: 10 MG, UNK
     Route: 048
  3. PLAVIX [Concomitant]
     Dosage: 75 MEQ/KG, UNK
     Route: 048
     Dates: start: 20061101
  4. NITOROL [Suspect]
     Dosage: 2 DF, UNK
  5. ASPIRIN [Concomitant]
     Dosage: 200 MG, UNK
  6. TERBINAFINE HCL [Concomitant]
     Dosage: 125 MG, UNK
     Route: 048
     Dates: start: 20071001

REACTIONS (1)
  - ERYTHEMA MULTIFORME [None]
